FAERS Safety Report 8429899-9 (Version None)
Quarter: 2012Q2

REPORT INFORMATION
  Report Type: 
  Country: None (occurrence: None)
  Receive Date: 20120612
  Receipt Date: 20120604
  Transmission Date: 20120825
  Serious: Yes (Hospitalization, Other)
  Sender: FDA-Public Use
  Company Number: US-ASTRAZENECA-2012SE20233

PATIENT
  Age: 63 Year
  Sex: Female
  Weight: 95.3 kg

DRUGS (26)
  1. NEXIUM [Suspect]
     Indication: ACQUIRED OESOPHAGEAL WEB
     Route: 048
     Dates: start: 20020101
  2. VITAMIN D [Concomitant]
  3. PAXIL [Concomitant]
  4. TRIAVIL [Concomitant]
  5. NEXIUM [Suspect]
     Indication: GASTROOESOPHAGEAL REFLUX DISEASE
     Route: 048
     Dates: start: 20020101
  6. ASPIRIN [Concomitant]
  7. EFFEXOR [Concomitant]
  8. ATIVAN [Concomitant]
     Dosage: 3 TIMES A DAY AS NEEDED
  9. ELAVIL [Concomitant]
  10. LOSARTAN [Concomitant]
  11. FELODIPINE [Concomitant]
  12. LIPITOR [Concomitant]
  13. ULTRAM [Concomitant]
     Indication: PAIN
     Dosage: AS NEEDED
  14. ACYCLOVIR [Concomitant]
  15. TROUCH [Concomitant]
  16. ACETAMINOPHEN [Concomitant]
  17. INDOCIN [Concomitant]
  18. CRESTOR [Suspect]
     Indication: BLOOD CHOLESTEROL
     Route: 048
     Dates: start: 20070101
  19. ENABLEX [Concomitant]
  20. MYCELEX [Concomitant]
  21. VOLTAREN [Concomitant]
  22. NEXIUM [Suspect]
     Indication: HYPERCHLORHYDRIA
     Route: 048
     Dates: start: 20020101
  23. ZESTRIL [Suspect]
     Route: 048
  24. ASCORBIC ACID [Concomitant]
  25. BACTRIM [Concomitant]
  26. VICODIN [Concomitant]

REACTIONS (7)
  - OFF LABEL USE [None]
  - HIATUS HERNIA [None]
  - DRUG HYPERSENSITIVITY [None]
  - DRUG DOSE OMISSION [None]
  - GASTRIC DISORDER [None]
  - EROSIVE OESOPHAGITIS [None]
  - LEUKAEMIA [None]
